FAERS Safety Report 4334098-6 (Version None)
Quarter: 2004Q2

REPORT INFORMATION
  Report Type: 
  Country: None (occurrence: None)
  Receive Date: 20040402
  Receipt Date: 20011101
  Transmission Date: 20050107
  Serious: Yes (Hospitalization)
  Sender: FDA-Public Use
  Company Number: 01_015

PATIENT
  Age: 59 Year
  Sex: Female
  Weight: 58 kg

DRUGS (2)
  1. DEPOCYT (DEPOCYT) [Suspect]
     Indication: CENTRAL NERVOUS SYSTEM LYMPHOMA
     Dosage: 50 MG; EVERY OTHER WEEK; INTRATHECAL
     Route: 037
     Dates: start: 20011025, end: 20011025
  2. DEPOCYT (DEPOCYT) [Suspect]
     Indication: MENINGITIS
     Dosage: 50 MG; EVERY OTHER WEEK; INTRATHECAL
     Route: 037
     Dates: start: 20011025, end: 20011025

REACTIONS (1)
  - FEBRILE NEUTROPENIA [None]
